FAERS Safety Report 8947030 (Version 2)
Quarter: 2013Q1

REPORT INFORMATION
  Report Type: Spontaneous
  Country: JP (occurrence: JP)
  Receive Date: 20121205
  Receipt Date: 20130226
  Transmission Date: 20140127
  Serious: Yes (Hospitalization)
  Sender: FDA-Public Use
  Company Number: JP-MYLANLABS-2012S1024411

PATIENT
  Age: 43 Year
  Sex: Female

DRUGS (3)
  1. FLUOROURACIL [Suspect]
     Indication: COLON CANCER METASTATIC
     Dosage: 400 MG/M2 AS BOLUS, AND 2400 MG/M2 INFUSION, EVERY 2W
     Route: 065
  2. FOLINIC ACID [Suspect]
     Indication: COLON CANCER METASTATIC
     Dosage: 200 MG/M2 AS 2H INFUSION, EVERY 2W
     Route: 065
  3. OXALIPLATIN [Suspect]
     Indication: COLON CANCER METASTATIC
     Dosage: 85 MG/M2 AS 2H INFUSION, EVERY 2W
     Route: 065

REACTIONS (1)
  - Posterior reversible encephalopathy syndrome [Recovering/Resolving]
